FAERS Safety Report 26077013 (Version 2)
Quarter: 2025Q4

REPORT INFORMATION
  Report Type: Spontaneous
  Country: US (occurrence: US)
  Receive Date: 20251121
  Receipt Date: 20251126
  Transmission Date: 20260118
  Serious: Yes (Other)
  Sender: PFIZER
  Company Number: US-PFIZER INC-202500229391

PATIENT
  Age: 66 Year
  Sex: Female

DRUGS (3)
  1. IBRANCE [Suspect]
     Active Substance: PALBOCICLIB
     Indication: Breast cancer female
     Dosage: 125 MG, TAKE 1 CAPSULE IN THE MORNING FOR 21 DAYS
  2. ITOVEBI [Concomitant]
     Active Substance: INAVOLISIB
     Dosage: UNK
  3. ITOVEBI [Concomitant]
     Active Substance: INAVOLISIB
     Dosage: UNK

REACTIONS (2)
  - Breast cancer female [Unknown]
  - Malignant neoplasm progression [Unknown]
